FAERS Safety Report 5641515-8 (Version None)
Quarter: 2008Q1

REPORT INFORMATION
  Report Type: 
  Country: None (occurrence: None)
  Receive Date: 20080227
  Receipt Date: 20071011
  Transmission Date: 20080703
  Serious: No
  Sender: FDA-Public Use
  Company Number: A0687124A

PATIENT
  Age: 45 Year
  Sex: Female

DRUGS (1)
  1. NICORETTE [Suspect]

REACTIONS (1)
  - THROAT TIGHTNESS [None]
